FAERS Safety Report 6618775-X (Version None)
Quarter: 2010Q1

REPORT INFORMATION
  Report Type: 
  Country: None (occurrence: None)
  Receive Date: 20100308
  Receipt Date: 20100222
  Transmission Date: 20100710
  Serious: Yes (Death, Hospitalization)
  Sender: FDA-Public Use
  Company Number: FR-BRISTOL-MYERS SQUIBB COMPANY-14998629

PATIENT
  Age: 81 Year
  Sex: Female
  Weight: 48 kg

DRUGS (5)
  1. GLUCOPHAGE [Suspect]
     Indication: TYPE 2 DIABETES MELLITUS
     Dosage: GLUCOPHAGE 1000 MG
     Route: 048
     Dates: end: 20100218
  2. DIAMICRON [Concomitant]
     Indication: TYPE 2 DIABETES MELLITUS
     Route: 048
     Dates: end: 20100218
  3. ISOPTIN [Concomitant]
     Indication: ATRIAL FIBRILLATION
     Dosage: ISOPTINE 120 MG
     Route: 048
     Dates: end: 20100218
  4. HYPERIUM [Concomitant]
     Indication: HYPERTENSION
     Dosage: HYPERIUM 1 MG
     Route: 048
     Dates: end: 20100218
  5. CORDARONE [Concomitant]
     Indication: ATRIAL FIBRILLATION
     Route: 042
     Dates: start: 20100219, end: 20100221

REACTIONS (8)
  - ASTHENIA [None]
  - CIRCULATORY COLLAPSE [None]
  - DIARRHOEA [None]
  - HYPERLACTACIDAEMIA [None]
  - METABOLIC ACIDOSIS [None]
  - MULTI-ORGAN FAILURE [None]
  - RENAL FAILURE ACUTE [None]
  - SOMNOLENCE [None]
